FAERS Safety Report 14252583 (Version 3)
Quarter: 2018Q1

REPORT INFORMATION
  Report Type: Spontaneous
  Country: JP (occurrence: JP)
  Receive Date: 20171205
  Receipt Date: 20180302
  Transmission Date: 20180508
  Serious: Yes (Death, Life-Threatening)
  Sender: FDA-Public Use
  Company Number: JP-ABBVIE-17P-087-2181375-00

PATIENT
  Sex: Female
  Weight: 50.1 kg

DRUGS (9)
  1. NICARDIPINE HYDROCHLORIDE. [Concomitant]
     Active Substance: NICARDIPINE HYDROCHLORIDE
     Indication: BLOOD PRESSURE MANAGEMENT
     Route: 042
     Dates: start: 20171031, end: 20171031
  2. ISOZOLE [Suspect]
     Active Substance: ESOMEPRAZOLE
     Indication: UPPER LIMB FRACTURE
  3. VECURONIUM [Suspect]
     Active Substance: VECURONIUM BROMIDE
     Indication: UPPER LIMB FRACTURE
  4. ATROPINE SULFATE HYDRATE [Concomitant]
     Active Substance: ATROPINE SULFATE
     Indication: BRADYCARDIA
     Route: 042
     Dates: start: 20171031, end: 20171031
  5. ISOZOLE [Suspect]
     Active Substance: ESOMEPRAZOLE
     Indication: INDUCTION OF ANAESTHESIA
  6. SEVOFRANE [Suspect]
     Active Substance: SEVOFLURANE
     Indication: INDUCTION AND MAINTENANCE OF ANAESTHESIA
     Dosage: 1.5% TO 5%
     Route: 055
     Dates: start: 20171031, end: 20171031
  7. ISOZOLE [Suspect]
     Active Substance: ESOMEPRAZOLE
     Indication: SHOULDER OPERATION
     Route: 042
     Dates: start: 20171031, end: 20171031
  8. VECURONIUM [Suspect]
     Active Substance: VECURONIUM BROMIDE
     Indication: SHOULDER OPERATION
     Dosage: 5 MG AND 1 MG
     Route: 042
     Dates: start: 20171031, end: 20171031
  9. VECURONIUM [Suspect]
     Active Substance: VECURONIUM BROMIDE
     Indication: HYPOTONIA

REACTIONS (5)
  - Blood pressure decreased [Fatal]
  - Blood pressure increased [Unknown]
  - Cardiac arrest [Fatal]
  - Bradycardia [Unknown]
  - Bronchospasm [Fatal]
